FAERS Safety Report 8613356 (Version 3)
Quarter: 2014Q1

REPORT INFORMATION
  Report Type: Spontaneous
  Country: US (occurrence: US)
  Receive Date: 20120613
  Receipt Date: 20140305
  Transmission Date: 20141002
  Serious: Yes (Hospitalization, Other)
  Sender: FDA-Public Use
  Company Number: US-ASTRAZENECA-2012SE37159

PATIENT
  Age: 59 Year
  Sex: Female
  Weight: 63.5 kg

DRUGS (15)
  1. SEROQUEL XR [Suspect]
     Indication: BIPOLAR DISORDER
     Route: 048
     Dates: start: 2012, end: 201402
  2. CRESTOR [Suspect]
     Indication: BLOOD CHOLESTEROL INCREASED
     Route: 048
     Dates: start: 2012
  3. ATENOLOL [Suspect]
     Indication: BLOOD PRESSURE ABNORMAL
     Route: 048
     Dates: start: 2012
  4. MEDICATION [Concomitant]
     Indication: RESTLESS LEGS SYNDROME
  5. GENERIC FOR PROTONIX [Concomitant]
     Indication: ULCER
     Route: 048
     Dates: start: 2013
  6. GENERIC FOR PROTONIX [Concomitant]
     Indication: ABDOMINAL DISCOMFORT
     Route: 048
     Dates: start: 2013
  7. INHALERS [Concomitant]
     Indication: ASTHMA
  8. LAMICTAL [Concomitant]
     Indication: DEPRESSION
     Route: 048
     Dates: start: 2013
  9. GENERIC FOR NORVASC [Concomitant]
     Indication: BLOOD PRESSURE ABNORMAL
     Route: 048
     Dates: start: 2013
  10. GENERIC FOR PLAVIX [Concomitant]
     Indication: BLOOD PRESSURE ABNORMAL
     Route: 048
     Dates: start: 2012
  11. GENERIC FOR SINGULAIR [Concomitant]
     Indication: ASTHMA
     Route: 048
     Dates: start: 2013
  12. ASPIRIN [Concomitant]
     Indication: ANTICOAGULANT THERAPY
     Route: 048
     Dates: start: 2010
  13. ADVAIR [Concomitant]
     Indication: ASTHMA
     Dosage: 500/50, 1 PUFF BID
     Route: 048
     Dates: start: 2013
  14. PUDROZA [Concomitant]
     Indication: ASTHMA
     Dosage: 400 MCG, 1 PUFF BID
     Route: 048
     Dates: start: 2013
  15. ZETIA [Concomitant]
     Indication: BLOOD CHOLESTEROL ABNORMAL
     Route: 048
     Dates: start: 2012

REACTIONS (5)
  - Dehydration [Unknown]
  - Angiopathy [Unknown]
  - Cardiac disorder [Unknown]
  - Memory impairment [Unknown]
  - Drug dose omission [Unknown]
